FAERS Safety Report 6558926-9 (Version None)
Quarter: 2010Q1

REPORT INFORMATION
  Report Type: 
  Country: None (occurrence: None)
  Receive Date: 20100129
  Receipt Date: 20100119
  Transmission Date: 20100710
  Serious: Yes (Hospitalization, Other)
  Sender: FDA-Public Use
  Company Number: JP-PFIZER INC-2010006917

PATIENT
  Age: 60 Year
  Sex: Female

DRUGS (8)
  1. GABAPEN [Suspect]
     Dosage: UNK
     Route: 048
     Dates: start: 20091227, end: 20100113
  2. PHENOBARBITAL TAB [Concomitant]
     Dates: end: 20091225
  3. HOMOCLOMIN [Concomitant]
     Route: 048
  4. ALLELOCK [Concomitant]
     Route: 048
  5. GANATON [Concomitant]
     Route: 048
  6. ALUMINIUM HYDROXIDE, MAGNESIUM HYDROXIDE [Concomitant]
     Route: 048
  7. SELBEX [Concomitant]
     Route: 048
  8. TAKEPRON [Concomitant]
     Route: 048

REACTIONS (4)
  - AGRANULOCYTOSIS [None]
  - PLATELET COUNT DECREASED [None]
  - PNEUMONIA [None]
  - SEPSIS [None]
